FAERS Safety Report 5707849-3 (Version None)
Quarter: 2008Q2

REPORT INFORMATION
  Report Type: 
  Country: None (occurrence: None)
  Receive Date: 20080414
  Receipt Date: 20080317
  Transmission Date: 20081010
  Serious: Yes (Death, Hospitalization)
  Sender: FDA-Public Use
  Company Number: 2008S1004406

PATIENT
  Age: 82 Year
  Sex: Male

DRUGS (1)
  1. AMIODARONE HCL [Suspect]
     Indication: ATRIAL FIBRILLATION
     Dosage: 400 MG; DAILY;

REACTIONS (3)
  - BUNDLE BRANCH BLOCK RIGHT [None]
  - CARDIOGENIC SHOCK [None]
  - TORSADE DE POINTES [None]
